FAERS Safety Report 5297319-1 (Version None)
Quarter: 2007Q2

REPORT INFORMATION
  Report Type: 
  Country: None (occurrence: None)
  Receive Date: 20070416
  Receipt Date: 20070409
  Transmission Date: 20071010
  Serious: Yes (Other)
  Sender: FDA-Public Use
  Company Number: US-BRISTOL-MYERS SQUIBB COMPANY-13743661

PATIENT
  Age: 47 Year
  Sex: Male
  Weight: 79 kg

DRUGS (4)
  1. METFORMIN HCL [Suspect]
     Indication: DIABETES MELLITUS NON-INSULIN-DEPENDENT
     Route: 048
  2. CLONAZEPAM [Suspect]
  3. DIVALPROEX SODIUM [Concomitant]
     Route: 048
  4. CITALOPRAM HYDROBROMIDE [Concomitant]
     Route: 048

REACTIONS (7)
  - BLOOD CREATININE INCREASED [None]
  - CARDIAC ENZYMES INCREASED [None]
  - CELLULITIS [None]
  - HEPATIC ENZYME INCREASED [None]
  - HYPERGLYCAEMIA [None]
  - LACTIC ACIDOSIS [None]
  - THERMAL BURN [None]
